FAERS Safety Report 19902619 (Version 1)
Quarter: 2021Q3

REPORT INFORMATION
  Report Type: Spontaneous
  Country: CA (occurrence: CA)
  Receive Date: 20210930
  Receipt Date: 20210930
  Transmission Date: 20211014
  Serious: Yes (Other)
  Sender: FDA-Public Use
  Company Number: CA-SA-2021SA319923

PATIENT
  Age: 43 Year
  Sex: Female

DRUGS (31)
  1. PARACETAMOL [Suspect]
     Active Substance: ACETAMINOPHEN
  2. ENBREL [Suspect]
     Active Substance: ETANERCEPT
  3. RITUXIMAB. [Suspect]
     Active Substance: RITUXIMAB
  4. TOFACITINIB [Suspect]
     Active Substance: TOFACITINIB
  5. TOPICORT [Suspect]
     Active Substance: DESOXIMETASONE
  6. HYDROXYCHLOROQUINE SULFATE. [Suspect]
     Active Substance: HYDROXYCHLOROQUINE SULFATE
  7. PREDNISONE. [Suspect]
     Active Substance: PREDNISONE
  8. ARAVA [Suspect]
     Active Substance: LEFLUNOMIDE
  9. PHTHALYLSULFATHIAZOLE [Suspect]
     Active Substance: PHTHALYLSULFATHIAZOLE
  10. ACETAMINOPHEN. [Concomitant]
     Active Substance: ACETAMINOPHEN
  11. LEFLUNOMIDE. [Suspect]
     Active Substance: LEFLUNOMIDE
  12. PSEUDOEPHEDRINE. [Suspect]
     Active Substance: PSEUDOEPHEDRINE HYDROCHLORIDE
  13. KEVZARA [Suspect]
     Active Substance: SARILUMAB
  14. DICLOFENAC [Suspect]
     Active Substance: DICLOFENAC
  15. HUMIRA [Suspect]
     Active Substance: ADALIMUMAB
  16. STELARA [Suspect]
     Active Substance: USTEKINUMAB
  17. PLAQUENIL [Suspect]
     Active Substance: HYDROXYCHLOROQUINE SULFATE
  18. REMICADE [Suspect]
     Active Substance: INFLIXIMAB
  19. SIMPONI [Suspect]
     Active Substance: GOLIMUMAB
  20. CIMZIA [Suspect]
     Active Substance: CERTOLIZUMAB PEGOL
  21. PSEUDOEPHEDRINE HYDROCHLORIDE. [Suspect]
     Active Substance: PSEUDOEPHEDRINE HYDROCHLORIDE
  22. FOLIC ACID. [Suspect]
     Active Substance: FOLIC ACID
  23. ORENCIA [Suspect]
     Active Substance: ABATACEPT
  24. CETIRIZINE HYDROCHLORIDE. [Suspect]
     Active Substance: CETIRIZINE HYDROCHLORIDE
  25. DESOXIMETASONE. [Suspect]
     Active Substance: DESOXIMETASONE
  26. ALENDRONATE SODIUM. [Suspect]
     Active Substance: ALENDRONATE SODIUM
  27. ACTEMRA [Suspect]
     Active Substance: TOCILIZUMAB
  28. SALAZOPYRIN [Concomitant]
     Active Substance: SULFASALAZINE
  29. SULFASALAZINE. [Suspect]
     Active Substance: SULFASALAZINE
  30. METHOTREXATE. [Suspect]
     Active Substance: METHOTREXATE
  31. CORTISONE ACETATE. [Suspect]
     Active Substance: CORTISONE ACETATE

REACTIONS (30)
  - Blister [Not Recovered/Not Resolved]
  - Discomfort [Not Recovered/Not Resolved]
  - Rheumatoid arthritis [Not Recovered/Not Resolved]
  - Swelling [Not Recovered/Not Resolved]
  - Exposure during pregnancy [Unknown]
  - General physical health deterioration [Not Recovered/Not Resolved]
  - Joint swelling [Not Recovered/Not Resolved]
  - Pain [Not Recovered/Not Resolved]
  - Synovitis [Not Recovered/Not Resolved]
  - Systemic lupus erythematosus [Not Recovered/Not Resolved]
  - Hip arthroplasty [Not Recovered/Not Resolved]
  - Drug ineffective [Unknown]
  - Product use issue [Unknown]
  - Abdominal discomfort [Not Recovered/Not Resolved]
  - Pemphigus [Not Recovered/Not Resolved]
  - Anti-cyclic citrullinated peptide antibody positive [Not Recovered/Not Resolved]
  - Contraindicated product administered [Unknown]
  - Arthropathy [Not Recovered/Not Resolved]
  - Hypersensitivity [Not Recovered/Not Resolved]
  - Hepatic enzyme increased [Not Recovered/Not Resolved]
  - Alopecia [Not Recovered/Not Resolved]
  - Pericarditis [Not Recovered/Not Resolved]
  - Treatment failure [Unknown]
  - Drug intolerance [Not Recovered/Not Resolved]
  - Hand deformity [Not Recovered/Not Resolved]
  - Wound [Not Recovered/Not Resolved]
  - Glossodynia [Not Recovered/Not Resolved]
  - Rash [Not Recovered/Not Resolved]
  - Fatigue [Not Recovered/Not Resolved]
  - Infusion related reaction [Not Recovered/Not Resolved]
